FAERS Safety Report 10956560 (Version 2)
Quarter: 2015Q2

REPORT INFORMATION
  Report Type: Spontaneous
  Country: US (occurrence: US)
  Receive Date: 20150326
  Receipt Date: 20150421
  Transmission Date: 20150821
  Serious: Yes (Death, Other)
  Sender: FDA-Public Use
  Company Number: US-TEVA-549300USA

PATIENT
  Sex: Male
  Weight: 57.2 kg

DRUGS (4)
  1. LORAZEPAM. [Concomitant]
     Active Substance: LORAZEPAM
     Indication: ANXIETY
     Dosage: 1-2 TABS EVERY 8 HOURS AT HOUR SLEEP PRN
  2. LORAZEPAM. [Concomitant]
     Active Substance: LORAZEPAM
     Indication: INSOMNIA
  3. ACTIQ [Suspect]
     Active Substance: FENTANYL CITRATE
     Indication: BREAKTHROUGH PAIN
     Dosage: FORM OF ADM UNKNOWN
     Route: 065
     Dates: start: 20130416, end: 20130515
  4. DURAGESIC [Concomitant]
     Active Substance: FENTANYL
     Dosage: 100 MICROGRAM DAILY;

REACTIONS (4)
  - Pancreatic carcinoma metastatic [Fatal]
  - Abdominal lymphadenopathy [Fatal]
  - Gastric cancer [Fatal]
  - Metastases to gastrointestinal tract [Fatal]
